FAERS Safety Report 16312877 (Version 1)
Quarter: 2019Q2

REPORT INFORMATION
  Report Type: Spontaneous
  Country: TR (occurrence: TR)
  Receive Date: 20190515
  Receipt Date: 20190515
  Transmission Date: 20190711
  Serious: Yes (Hospitalization, Other)
  Sender: FDA-Public Use
  Company Number: TR-GLAXOSMITHKLINE-TR2019GSK083369

PATIENT
  Age: 62 Year
  Sex: Male

DRUGS (2)
  1. DICLOFENAC SODIUM. [Suspect]
     Active Substance: DICLOFENAC SODIUM
     Indication: ARTHRALGIA
     Dosage: UNK UNK, QD
  2. TENOFOVIR DISOPROXIL FUMARATE. [Concomitant]
     Active Substance: TENOFOVIR DISOPROXIL FUMARATE
     Indication: CHRONIC HEPATITIS B
     Dosage: 245 MG DAILY

REACTIONS (15)
  - Renal failure [Unknown]
  - Azotaemia [Unknown]
  - Metabolic acidosis [Unknown]
  - Polyuria [Unknown]
  - Nausea [Unknown]
  - Vomiting [Unknown]
  - Nocturia [Unknown]
  - Pollakiuria [Unknown]
  - C-reactive protein increased [Unknown]
  - Renal impairment [Not Recovered/Not Resolved]
  - Oliguria [Unknown]
  - Creatinine renal clearance decreased [Unknown]
  - Decreased appetite [Unknown]
  - Renal amyloidosis [Unknown]
  - White blood cell count increased [Unknown]

NARRATIVE: CASE EVENT DATE: 2017
